FAERS Safety Report 4388061-X (Version None)
Quarter: 2004Q2

REPORT INFORMATION
  Report Type: 
  Country: None (occurrence: None)
  Receive Date: 20040607
  Receipt Date: 20030502
  Transmission Date: 20050107
  Serious: Yes (Other)
  Sender: FDA-Public Use
  Company Number: 332291

PATIENT
  Sex: 0

DRUGS (2)
  1. ACCUTANE [Suspect]
     Indication: DRUG USE FOR UNKNOWN INDICATION
     Dates: start: 20020801, end: 20030101
  2. CONTRACEPTIVE NOS (CONTRACEPTIVE NOS) [Concomitant]

REACTIONS (3)
  - NO ADVERSE DRUG EFFECT [None]
  - NO ADVERSE EFFECT [None]
  - PREGNANCY [None]
